FAERS Safety Report 6035893-8 (Version None)
Quarter: 2009Q1

REPORT INFORMATION
  Report Type: 
  Country: None (occurrence: None)
  Receive Date: 20090113
  Receipt Date: 20090109
  Transmission Date: 20090719
  Serious: Yes (Hospitalization)
  Sender: FDA-Public Use
  Company Number: A0718180A

PATIENT
  Age: 55 Year
  Sex: Female
  Weight: 131.8 kg

DRUGS (10)
  1. AVANDIA [Suspect]
     Dosage: 4MG TWICE PER DAY
     Route: 048
     Dates: start: 20031106, end: 20070604
  2. AVANDAMET [Suspect]
     Route: 048
     Dates: start: 20031209, end: 20070602
  3. GLUCOPHAGE [Concomitant]
  4. METFORMIN [Concomitant]
  5. COREG [Concomitant]
     Dates: start: 20040101
  6. ZOCOR [Concomitant]
  7. ZOLOFT [Concomitant]
  8. ACTONEL [Concomitant]
  9. LASIX [Concomitant]
  10. LISINOPRIL [Concomitant]

REACTIONS (2)
  - HEART INJURY [None]
  - MYOCARDIAL INFARCTION [None]
